FAERS Safety Report 6832124-3 (Version None)
Quarter: 2010Q3

REPORT INFORMATION
  Report Type: 
  Country: None (occurrence: None)
  Receive Date: 20100707
  Receipt Date: 20100623
  Transmission Date: 20110219
  Serious: Yes (Life-Threatening, Hospitalization)
  Sender: FDA-Public Use
  Company Number: CV20100300

PATIENT
  Age: 47 Year
  Sex: Female

DRUGS (15)
  1. PROPOFOL [Suspect]
     Indication: INDUCTION OF ANAESTHESIA
     Route: 042
     Dates: start: 20100529
  2. SUFENTA (SUFENTANILCITRATE) (SUFENTANIL CITRATE) [Concomitant]
  3. ATRACURIUM (ATRACURIUM) (ATRACURIUM) [Concomitant]
  4. AUGMANTIN (AMOXI-CLAVULANICO) (AMOXI-CLAVULANICO) [Concomitant]
  5. KETAMIN (KETAMINE HYDROCHLORIDE) (KETAMINE HYDROCHLORIDE) [Concomitant]
  6. SUPRANE (DEFLURANE) (DESFLURANE) [Concomitant]
  7. NAROPEINE (ROPIVACAINE HYDROCHLORIDE) (ROPIVACAINE HYDROCHLORIDE) [Concomitant]
  8. NEURONTIN [Concomitant]
  9. BETADIN (POVIDONE-IODINE) (POVIDONE-IODINE) [Concomitant]
  10. NORMACOL (NORMACOL) (NORMACOL) [Concomitant]
  11. LOVENOX (HEPARIN-FRACTION, SODIUM SALT) (HEPARIN-FRACTION, SODIUMSALT) [Concomitant]
  12. PERFALGAN (PARACETAMOL) (PARACETAMOL) [Concomitant]
  13. ACUPA (NEFORM HYDROCHLORIDE) (NEFOPM HYDROCHLORIDE) [Concomitant]
  14. MORPHINE LAVOISIER (MORPHINE) (MORPHINE) [Concomitant]
  15. EPHEDRINE (EPHEDRINE) (EPHEDRINE) [Concomitant]

REACTIONS (6)
  - ACUTE PULMONARY OEDEMA [None]
  - CONTINUOUS HAEMODIAFILTRATION [None]
  - FLUID OVERLOAD [None]
  - METABOLIC ACIDOSIS [None]
  - PLEURAL EFFUSION [None]
  - RENAL FAILURE ACUTE [None]
